FAERS Safety Report 14206369 (Version 1)
Quarter: 2017Q4

REPORT INFORMATION
  Report Type: Spontaneous
  Country: US (occurrence: US)
  Receive Date: 20171120
  Receipt Date: 20171120
  Transmission Date: 20180321
  Serious: No
  Sender: FDA-Public Use
  Company Number: US-SHIRE-US201726726

PATIENT

DRUGS (1)
  1. XIIDRA [Suspect]
     Active Substance: LIFITEGRAST
     Indication: DRY EYE
     Dosage: 0.2 ML, 2X/DAY:BID

REACTIONS (2)
  - Dry eye [Not Recovered/Not Resolved]
  - Drug ineffective [Not Recovered/Not Resolved]
